FAERS Safety Report 9850218 (Version 1)
Quarter: 2014Q1

REPORT INFORMATION
  Report Type: Spontaneous
  Country: US (occurrence: None)
  Receive Date: 20140124
  Receipt Date: 20140124
  Transmission Date: 20141002
  Serious: Yes (Hospitalization)
  Sender: FDA-Public Use
  Company Number: None

PATIENT
  Age: 43 Year
  Sex: Female
  Weight: 84.5 kg

DRUGS (3)
  1. GAMUNEX-C [Suspect]
     Indication: STIFF PERSON SYNDROME
     Route: 042
  2. GAMUNEX-C [Suspect]
  3. GAMUNEX-C [Suspect]

REACTIONS (1)
  - Meningitis aseptic [None]
